FAERS Safety Report 10190992 (Version 1)
Quarter: 2014Q2

REPORT INFORMATION
  Report Type: Spontaneous
  Country: US (occurrence: None)
  Receive Date: 20140521
  Receipt Date: 20140521
  Transmission Date: 20141212
  Serious: No
  Sender: FDA-Public Use
  Company Number: None

PATIENT
  Age: 52 Year
  Sex: Male
  Weight: 95 kg

DRUGS (1)
  1. LAMOTRIGINE [Suspect]
     Indication: BIPOLAR DISORDER
     Dosage: 25 MG/D STARTED 4/21/14, INCREASED 50MG 4/28/14
     Route: 048
     Dates: start: 20140421

REACTIONS (3)
  - Dermatitis bullous [None]
  - Rash macular [None]
  - Rash pruritic [None]
